FAERS Safety Report 6038227-8 (Version None)
Quarter: 2009Q1

REPORT INFORMATION
  Report Type: 
  Country: None (occurrence: None)
  Receive Date: 20090114
  Receipt Date: 20090114
  Transmission Date: 20090719
  Serious: Yes (Death, Hospitalization)
  Sender: FDA-Public Use
  Company Number: None

PATIENT
  Sex: Female
  Weight: 5.63 kg

DRUGS (8)
  1. CYCLOPHOSPHAMIDE [Suspect]
     Dosage: 292 MG
     Dates: end: 20081011
  2. CYTARABINE [Suspect]
     Dosage: 30 MG
     Dates: end: 20081022
  3. DAUNORUBICIN HCL [Suspect]
     Dosage: 9 MG
     Dates: end: 20081008
  4. HYDROCORTISONE [Suspect]
     Dosage: 15 MG
     Dates: end: 20081022
  5. METHOTREXATE [Suspect]
     Dosage: 15 MG
     Dates: end: 20081022
  6. PEG-L- ASPARAGINASE (K-H) [Suspect]
     Dosage: 725 UNIT
     Dates: end: 20081010
  7. PREDNISONE [Suspect]
     Dosage: 814.6 MG
     Dates: end: 20081028
  8. VINCRISTINE SULFATE [Suspect]
     Dosage: .7 MG
     Dates: end: 20081022

REACTIONS (8)
  - HEPATIC FUNCTION ABNORMAL [None]
  - HYPOTENSION [None]
  - MULTI-ORGAN DISORDER [None]
  - OXYGEN SATURATION DECREASED [None]
  - RENAL IMPAIRMENT [None]
  - RESPIRATORY DISTRESS [None]
  - SYSTEMIC CANDIDA [None]
  - THROMBOCYTOPENIA [None]
